FAERS Safety Report 10561327 (Version 2)
Quarter: 2018Q1

REPORT INFORMATION
  Report Type: Spontaneous
  Country: BR (occurrence: BR)
  Receive Date: 20141103
  Receipt Date: 20180313
  Transmission Date: 20180508
  Serious: Yes (Other)
  Sender: FDA-Public Use
  Company Number: PHHY2014BR142966

PATIENT
  Age: 75 Year
  Sex: Female
  Weight: 75 kg

DRUGS (11)
  1. VITAMIN B12 [Concomitant]
     Active Substance: CYANOCOBALAMIN
     Indication: PRODUCT USED FOR UNKNOWN INDICATION
     Dosage: UNK DF, UNK
     Route: 065
  2. XALATAN [Concomitant]
     Active Substance: LATANOPROST
     Indication: PRODUCT USED FOR UNKNOWN INDICATION
     Route: 065
  3. OLCADIL [Suspect]
     Active Substance: CLOXAZOLAM
     Indication: NERVOUSNESS
     Dosage: 1 DF (1 MG), QD (IN THE MORNING)
     Route: 048
     Dates: end: 20180303
  4. OLCADIL [Suspect]
     Active Substance: CLOXAZOLAM
     Indication: ANXIETY
  5. PURAN [Concomitant]
     Active Substance: LEVOTHYROXINE SODIUM
     Indication: PRODUCT USED FOR UNKNOWN INDICATION
     Route: 065
  6. DEPURA [Concomitant]
     Active Substance: CHOLECALCIFEROL
     Indication: PRODUCT USED FOR UNKNOWN INDICATION
     Route: 065
  7. DIOVAN [Suspect]
     Active Substance: VALSARTAN
     Dosage: 160 MG, UNK
     Route: 048
  8. RITMONORM [Concomitant]
     Active Substance: PROPAFENONE HYDROCHLORIDE
     Indication: PRODUCT USED FOR UNKNOWN INDICATION
     Dosage: 0.5 DF, BID (HALF IN MORNING AND HALF IN NIGHT)
     Route: 065
  9. DIOVAN [Suspect]
     Active Substance: VALSARTAN
     Dosage: 80 MG, UNK
     Route: 048
  10. DIOVAN [Suspect]
     Active Substance: VALSARTAN
     Indication: HYPERTENSION
     Dosage: 2.5 DF, QD (1.5 IN THE MORNING AND 1 AT NIGHT) (CONC 80 MG)
     Route: 048
  11. OLCADIL [Suspect]
     Active Substance: CLOXAZOLAM
     Indication: TENSION

REACTIONS (16)
  - Malaise [Unknown]
  - Eye disorder [Unknown]
  - Cataract [Unknown]
  - Glaucoma [Unknown]
  - Depression [Recovering/Resolving]
  - Hypersensitivity [Unknown]
  - Feeling abnormal [Unknown]
  - Pollakiuria [Unknown]
  - Blood pressure decreased [Unknown]
  - Abdominal discomfort [Unknown]
  - Blood pressure increased [Unknown]
  - Anxiety [Unknown]
  - Gastritis [Unknown]
  - Fear [Unknown]
  - Drug dependence [Unknown]
  - Cardiac disorder [Unknown]

NARRATIVE: CASE EVENT DATE: 20141027
